FAERS Safety Report 7000560-0 (Version None)
Quarter: 2010Q3

REPORT INFORMATION
  Report Type: 
  Country: None (occurrence: None)
  Receive Date: 20100920
  Receipt Date: 20100519
  Transmission Date: 20110219
  Serious: No
  Sender: FDA-Public Use
  Company Number: US-ASTRAZENECA-2010SE22954

PATIENT
  Age: 72 Year
  Sex: Male

DRUGS (5)
  1. SEROQUEL XR [Suspect]
     Indication: DEPRESSION
     Route: 048
     Dates: start: 20100329
  2. SEROQUEL XR [Suspect]
     Route: 048
     Dates: start: 20100426
  3. SIMVASTATIN [Concomitant]
     Indication: BLOOD PRESSURE
  4. PLAVIX [Concomitant]
  5. HYDROCHLORATHIAZIDE [Concomitant]

REACTIONS (2)
  - BLOOD PRESSURE DECREASED [None]
  - FALL [None]
